FAERS Safety Report 24222563 (Version 1)
Quarter: 2024Q3

REPORT INFORMATION
  Report Type: Spontaneous
  Country: IT (occurrence: IT)
  Receive Date: 20240819
  Receipt Date: 20240819
  Transmission Date: 20241017
  Serious: Yes (Other)
  Sender: BAYER
  Company Number: None

PATIENT
  Age: 65 Year
  Sex: Male
  Weight: 51 kg

DRUGS (10)
  1. CIPROFLOXACIN [Suspect]
     Active Substance: CIPROFLOXACIN
     Dates: start: 20240515
  2. OSELTAMIVIR [Suspect]
     Active Substance: OSELTAMIVIR
     Indication: Influenza
     Dosage: 75 MG, BID
  3. METRONIDAZOLE [Suspect]
     Active Substance: METRONIDAZOLE
     Indication: Pneumonia
     Dosage: 500 MG, Q8HR
     Dates: start: 20240515, end: 20240520
  4. PREDNISONE [Concomitant]
     Active Substance: PREDNISONE
  5. ACYCLOVIR [Concomitant]
     Active Substance: ACYCLOVIR
  6. PREGABALIN [Concomitant]
     Active Substance: PREGABALIN
  7. DAPTOMYCIN [Concomitant]
     Active Substance: DAPTOMYCIN
     Indication: Endocarditis
     Dates: start: 20240510
  8. MIDODRINE [Concomitant]
     Active Substance: MIDODRINE
  9. FUROSEMIDE [Concomitant]
     Active Substance: FUROSEMIDE
  10. DULOXETINE [Concomitant]
     Active Substance: DULOXETINE

REACTIONS (3)
  - Neutropenia [Recovering/Resolving]
  - Leukopenia [Recovering/Resolving]
  - Lymphopenia [Recovering/Resolving]

NARRATIVE: CASE EVENT DATE: 20240520
